FAERS Safety Report 11827081 (Version 1)
Quarter: 2015Q4

REPORT INFORMATION
  Report Type: Spontaneous
  Country: US (occurrence: US)
  Receive Date: 20151211
  Receipt Date: 20151211
  Transmission Date: 20160305
  Serious: Yes (Other)
  Sender: FDA-Public Use
  Company Number: US-BAXTER-2015BAX066187

PATIENT
  Age: 5 Year
  Sex: Male

DRUGS (7)
  1. CEFAZOLIN [Suspect]
     Active Substance: CEFAZOLIN
     Indication: EVIDENCE BASED TREATMENT
     Route: 042
  2. CEFAZOLIN [Suspect]
     Active Substance: CEFAZOLIN
     Indication: ANTIBIOTIC THERAPY
  3. VANCOMYCIN INJECTION, USP [Suspect]
     Active Substance: VANCOMYCIN
     Indication: ANTIBIOTIC THERAPY
  4. LEVOFLOXACIN. [Concomitant]
     Active Substance: LEVOFLOXACIN
     Indication: ANTIBIOTIC THERAPY
     Route: 048
  5. VANCOMYCIN INJECTION, USP [Suspect]
     Active Substance: VANCOMYCIN
     Indication: EVIDENCE BASED TREATMENT
     Route: 065
  6. CEFOTAXIME [Suspect]
     Active Substance: CEFOTAXIME SODIUM
     Indication: ANTIBIOTIC THERAPY
  7. CEFOTAXIME [Suspect]
     Active Substance: CEFOTAXIME SODIUM
     Indication: EVIDENCE BASED TREATMENT
     Route: 065

REACTIONS (2)
  - Neutropenia [Recovering/Resolving]
  - Blood pressure systolic increased [Not Recovered/Not Resolved]
